FAERS Safety Report 23401626 (Version 1)
Quarter: 2024Q1

REPORT INFORMATION
  Report Type: Spontaneous
  Country: US (occurrence: US)
  Receive Date: 20240115
  Receipt Date: 20240115
  Transmission Date: 20240410
  Serious: Yes (Death, Other)
  Sender: FDA-Public Use
  Company Number: US-ADVANZ PHARMA-202312012295

PATIENT

DRUGS (8)
  1. CLONIDINE [Suspect]
     Active Substance: CLONIDINE
     Dosage: UNK (INGESTION)
     Route: 048
  2. AMLODIPINE [Suspect]
     Active Substance: AMLODIPINE BESYLATE
     Dosage: UNK (INGESTION)
     Route: 048
  3. CARVEDILOL [Suspect]
     Active Substance: CARVEDILOL
     Dosage: UNK (INGESTION)
     Route: 048
  4. ENALAPRIL [Suspect]
     Active Substance: ENALAPRIL
     Dosage: UNK (INGESTION)
     Route: 048
  5. ACETAMINOPHEN\HYDROCODONE [Suspect]
     Active Substance: ACETAMINOPHEN\HYDROCODONE
     Dosage: UNK (INGESTION)
     Route: 048
  6. LORAZEPAM [Suspect]
     Active Substance: LORAZEPAM
     Dosage: UNK (INGESTION)
     Route: 048
  7. PROCHLORPERAZINE [Suspect]
     Active Substance: PROCHLORPERAZINE
     Dosage: UNK (INGESTION)
     Route: 048
  8. DIPHENHYDRAMINE [Suspect]
     Active Substance: DIPHENHYDRAMINE
     Dosage: UNK (INGESTION)
     Route: 048

REACTIONS (1)
  - Completed suicide [Fatal]
